FAERS Safety Report 9268233 (Version 2)
Quarter: 2013Q2

REPORT INFORMATION
  Report Type: Spontaneous
  Country: US (occurrence: US)
  Receive Date: 20130502
  Receipt Date: 20130509
  Transmission Date: 20140414
  Serious: Yes (Hospitalization)
  Sender: FDA-Public Use
  Company Number: US-GILEAD-2013-0074325

PATIENT
  Age: 58 Year
  Sex: Female

DRUGS (4)
  1. LETAIRIS [Suspect]
     Indication: PULMONARY HYPERTENSION
     Dosage: 5 MG, QD
     Route: 048
     Dates: start: 20110121
  2. LETAIRIS [Suspect]
     Indication: SCLERODERMA
  3. AMOXICILLIN [Suspect]
     Indication: SINUSITIS
     Dates: start: 20130319, end: 20130326
  4. ADCIRCA [Concomitant]
     Indication: PULMONARY HYPERTENSION
     Dates: start: 20110122

REACTIONS (3)
  - Diarrhoea [Recovered/Resolved]
  - Dehydration [Recovered/Resolved]
  - Sinusitis [Unknown]
